FAERS Safety Report 9348863 (Version 1)
Quarter: 2013Q2

REPORT INFORMATION
  Report Type: Spontaneous
  Country: FR (occurrence: FR)
  Receive Date: 20130614
  Receipt Date: 20130614
  Transmission Date: 20140414
  Serious: Yes (Death, Hospitalization, Other)
  Sender: FDA-Public Use
  Company Number: FR-TEVA-412069ISR

PATIENT
  Age: 82 Year
  Sex: Female

DRUGS (1)
  1. FUROSEMIDE TEVA 40 MG [Suspect]
     Dates: start: 2013

REACTIONS (4)
  - Cardiac failure [Fatal]
  - Oedema [Recovering/Resolving]
  - Pneumonia [Unknown]
  - Cardiac infection [Unknown]
